FAERS Safety Report 12920127 (Version 1)
Quarter: 2016Q4

REPORT INFORMATION
  Report Type: Spontaneous
  Country: US (occurrence: US)
  Receive Date: 20161104
  Receipt Date: 20161104
  Transmission Date: 20170207
  Serious: Yes (Other)
  Sender: FDA-Public Use
  Company Number: None

PATIENT
  Age: 43 Year
  Sex: Female
  Weight: 63 kg

DRUGS (1)
  1. RANITIDINE GLENMARK PHARMA [Suspect]
     Active Substance: RANITIDINE
     Route: 048
     Dates: start: 20161102, end: 20161103

REACTIONS (1)
  - Urticaria [None]

NARRATIVE: CASE EVENT DATE: 20161102
